FAERS Safety Report 9787030 (Version 1)
Quarter: 2013Q4

REPORT INFORMATION
  Report Type: Spontaneous
  Country: US (occurrence: US)
  Receive Date: 20131227
  Receipt Date: 20131227
  Transmission Date: 20140711
  Serious: No
  Sender: FDA-Public Use
  Company Number: US-GILEAD-2013-0090893

PATIENT
  Sex: Female

DRUGS (2)
  1. LETAIRIS [Suspect]
     Indication: PRODUCT USED FOR UNKNOWN INDICATION
     Dosage: 10 MG, QD
     Route: 048
     Dates: start: 20110622
  2. REVATIO [Concomitant]

REACTIONS (6)
  - Epistaxis [Unknown]
  - Malaise [Unknown]
  - Abdominal distension [Unknown]
  - Dyspnoea [Unknown]
  - Oedema [Unknown]
  - Nasal congestion [Unknown]
